FAERS Safety Report 11569169 (Version 1)
Quarter: 2015Q3

REPORT INFORMATION
  Report Type: Spontaneous
  Country: US (occurrence: US)
  Receive Date: 20150929
  Receipt Date: 20150929
  Transmission Date: 20151125
  Serious: Yes (Other)
  Sender: FDA-Public Use
  Company Number: US-B.I. PHARMACEUTICALS,INC./RIDGEFIELD-2015-BI-52766BP

PATIENT
  Age: 70 Year
  Sex: Female
  Weight: 61 kg

DRUGS (9)
  1. MULTIVITAMIN [Concomitant]
     Active Substance: VITAMINS
     Indication: VITAMIN SUPPLEMENTATION
     Route: 048
  2. SPIRIVA [Suspect]
     Active Substance: TIOTROPIUM BROMIDE MONOHYDRATE
     Indication: CHRONIC OBSTRUCTIVE PULMONARY DISEASE
     Dosage: 18 MCG
     Route: 055
     Dates: start: 2010
  3. ASPRIN [Concomitant]
     Active Substance: ASPIRIN
     Indication: ANTICOAGULANT THERAPY
  4. CARVEDILOL. [Concomitant]
     Active Substance: CARVEDILOL
     Indication: HYPERTENSION
     Dosage: 12.5 MG
     Route: 048
  5. VITAMIN D [Concomitant]
     Active Substance: CHOLECALCIFEROL
     Indication: VITAMIN SUPPLEMENTATION
     Route: 048
  6. LASIX [Concomitant]
     Active Substance: FUROSEMIDE
     Indication: FLUID RETENTION
     Dosage: 80 MG
     Route: 048
  7. ASPRIN [Concomitant]
     Active Substance: ASPIRIN
     Indication: ANTICOAGULANT THERAPY
     Dosage: 81 MG
     Route: 048
  8. CALCIUM [Concomitant]
     Active Substance: CALCIUM
     Indication: VITAMIN SUPPLEMENTATION
     Route: 048
  9. MOBIC [Concomitant]
     Active Substance: MELOXICAM
     Indication: ARTHRITIS
     Route: 048

REACTIONS (4)
  - Cardiac failure congestive [Unknown]
  - Irritability [Unknown]
  - Medication error [Unknown]
  - Atrial fibrillation [Unknown]

NARRATIVE: CASE EVENT DATE: 20150925
